FAERS Safety Report 12995099 (Version 1)
Quarter: 2016Q4

REPORT INFORMATION
  Report Type: Spontaneous
  Country: IN (occurrence: IN)
  Receive Date: 20161202
  Receipt Date: 20161202
  Transmission Date: 20170207
  Serious: Yes (Death, Other)
  Sender: FDA-Public Use
  Company Number: IN-SA-2016SA200639

PATIENT
  Sex: Female

DRUGS (1)
  1. VANDETANIB. [Suspect]
     Active Substance: VANDETANIB
     Indication: MEDULLARY THYROID CANCER
     Route: 065

REACTIONS (2)
  - Cardiac failure congestive [Unknown]
  - Death [Fatal]

NARRATIVE: CASE EVENT DATE: 20161115
